FAERS Safety Report 5925470-9 (Version None)
Quarter: 2008Q4

REPORT INFORMATION
  Report Type: 
  Country: None (occurrence: None)
  Receive Date: 20081021
  Receipt Date: 20081010
  Transmission Date: 20090506
  Serious: Yes (Hospitalization)
  Sender: FDA-Public Use
  Company Number: FR-JNJFOC-20080600759

PATIENT
  Sex: Female
  Weight: 60 kg

DRUGS (14)
  1. REMINYL LP [Suspect]
     Indication: DEMENTIA ALZHEIMER'S TYPE
     Route: 048
  2. SOLIAN [Suspect]
     Indication: ANXIETY
     Route: 065
  3. SOLIAN [Suspect]
     Indication: AGITATION
     Route: 065
  4. EFFEXOR [Suspect]
     Indication: DEPRESSION
     Route: 065
  5. EBIXA [Suspect]
     Indication: DEMENTIA ALZHEIMER'S TYPE
     Route: 065
  6. TEMESTA [Concomitant]
     Indication: ANXIETY
     Route: 065
  7. VITAMIN B-12 [Concomitant]
     Indication: PERNICIOUS ANAEMIA
     Route: 065
  8. PRAZEPAM [Concomitant]
     Indication: DEPRESSION
     Route: 065
  9. CALCID D3 [Concomitant]
     Indication: OSTEOPOROSIS
     Route: 065
  10. FOSAVANCE [Concomitant]
     Indication: OSTEOPOROSIS
     Route: 065
  11. VITAMIN B-12 [Concomitant]
     Route: 030
  12. EQUANIL [Concomitant]
  13. IMOVANE [Concomitant]
  14. ZOCOR [Concomitant]

REACTIONS (3)
  - LUNG INFECTION [None]
  - NEUROLEPTIC MALIGNANT SYNDROME [None]
  - SEPSIS [None]
